FAERS Safety Report 7861982 (Version 3)
Quarter: 2013Q4

REPORT INFORMATION
  Report Type: Spontaneous
  Country: US (occurrence: US)
  Receive Date: 20110318
  Receipt Date: 20131004
  Transmission Date: 20140711
  Serious: Yes (Hospitalization)
  Sender: FDA-Public Use
  Company Number: US-RANBAXY-2011US-42936

PATIENT
  Age: 39 Year
  Sex: Female

DRUGS (1)
  1. VERAPAMIL [Suspect]
     Indication: HYPERTENSION
     Dosage: 17 EXTENDED RELEASE TABLETS 240MG
     Route: 048

REACTIONS (2)
  - Atrioventricular block second degree [Recovered/Resolved]
  - Overdose [Recovered/Resolved]
